FAERS Safety Report 8325874-3 (Version None)
Quarter: 2012Q2

REPORT INFORMATION
  Report Type: 
  Country: None (occurrence: None)
  Receive Date: 20120501
  Receipt Date: 20120420
  Transmission Date: 20120825
  Serious: No
  Sender: FDA-Public Use
  Company Number: US-BIOGENIDEC-2012BI013887

PATIENT
  Age: 45 Year
  Sex: Female

DRUGS (4)
  1. AVONEX [Concomitant]
     Indication: MULTIPLE SCLEROSIS
     Route: 030
  2. ANTICHOLINERGIC (NOS) [Concomitant]
  3. TYSABRI [Suspect]
     Route: 042
     Dates: start: 20060810
  4. TYSABRI [Suspect]
     Indication: MULTIPLE SCLEROSIS
     Route: 042
     Dates: start: 20050104

REACTIONS (1)
  - URINARY TRACT DISORDER [None]
